FAERS Safety Report 7715076-3 (Version None)
Quarter: 2011Q3

REPORT INFORMATION
  Report Type: 
  Country: None (occurrence: None)
  Receive Date: 20110829
  Receipt Date: 20110819
  Transmission Date: 20111222
  Serious: Yes (Hospitalization)
  Sender: FDA-Public Use
  Company Number: FR-AMGEN-FRASP2011043607

PATIENT
  Age: 73 Year
  Sex: Female

DRUGS (10)
  1. LISINOPRIL [Concomitant]
     Dosage: 20 MG, DAILY
  2. MODOPAR [Concomitant]
     Dosage: 62.5 MG, DAILY
  3. PAROXETINE HCL [Concomitant]
     Dosage: 5 MG, DAILY
  4. NICARDIPINE HCL [Concomitant]
     Dosage: 50 MG, 2X/DAY
  5. GLIMEPIRIDE [Concomitant]
     Dosage: 4 MG, 1X/DAY
  6. PREDNISONE [Concomitant]
     Dosage: 5 MG, DAILY
  7. METFORMIN HCL [Concomitant]
     Dosage: 850 MG, 2X/DAY
  8. ENBREL [Suspect]
     Indication: RHEUMATOID ARTHRITIS
     Dosage: 50 MG, WEEKLY
     Route: 058
     Dates: end: 20110311
  9. ASPIRIN [Concomitant]
     Dosage: 75 MG, DAILY
  10. LYRICA [Concomitant]
     Dosage: 100 MG, 2X/DAY

REACTIONS (4)
  - GALLBLADDER PERFORATION [None]
  - PANCREATITIS [None]
  - CHOLECYSTITIS [None]
  - CHEMICAL PERITONITIS [None]
